FAERS Safety Report 18362324 (Version 1)
Quarter: 2020Q4

REPORT INFORMATION
  Report Type: Report from Study
  Country: BR (occurrence: BR)
  Receive Date: 20201008
  Receipt Date: 20201008
  Transmission Date: 20210114
  Serious: Yes (Other)
  Sender: FDA-Public Use
  Company Number: NVSC2020BR270465

PATIENT
  Sex: Male

DRUGS (2)
  1. TRIMETAZIDINE HCL [Concomitant]
     Active Substance: TRIMETAZIDINE
     Indication: PRODUCT USED FOR UNKNOWN INDICATION
     Dosage: 35 G, Q12H (NEOVANGY MR)
     Route: 065
  2. ENTRESTO [Suspect]
     Active Substance: SACUBITRIL\VALSARTAN
     Indication: CARDIAC FAILURE
     Dosage: 1 DF, Q12H
     Route: 065
     Dates: start: 20200916

REACTIONS (7)
  - Arterial occlusive disease [Recovering/Resolving]
  - Burning sensation [Unknown]
  - Peripheral swelling [Unknown]
  - Cardiovascular disorder [Unknown]
  - Feeling hot [Not Recovered/Not Resolved]
  - Paraesthesia [Not Recovered/Not Resolved]
  - Pruritus [Unknown]
